FAERS Safety Report 7350471-6 (Version None)
Quarter: 2011Q1

REPORT INFORMATION
  Report Type: 
  Country: None (occurrence: None)
  Receive Date: 20110314
  Receipt Date: 20090930
  Transmission Date: 20110831
  Serious: Yes (Other)
  Sender: FDA-Public Use
  Company Number: PHHY2009DE67453

PATIENT

DRUGS (1)
  1. EXTAVIA [Suspect]
     Route: 058
     Dates: start: 20090823

REACTIONS (3)
  - NASOPHARYNGITIS [None]
  - BACK PAIN [None]
  - CONDITION AGGRAVATED [None]
